FAERS Safety Report 4386250-1 (Version None)
Quarter: 2004Q2

REPORT INFORMATION
  Report Type: 
  Country: None (occurrence: None)
  Receive Date: 20040623
  Receipt Date: 20040611
  Transmission Date: 20050107
  Serious: Yes (Hospitalization, Other)
  Sender: FDA-Public Use
  Company Number: DE-JNJFOC-20040603202

PATIENT
  Age: 54 Year
  Sex: Female

DRUGS (1)
  1. DUROGESIC SMAT (FENTANYL) PATCH [Suspect]
     Indication: PAIN
     Dosage: 75 UG/HR, TRANSDERMAL
     Route: 062

REACTIONS (3)
  - CARDIOVASCULAR DISORDER [None]
  - NAUSEA [None]
  - VOMITING [None]
